FAERS Safety Report 6189364-9 (Version None)
Quarter: 2009Q2

REPORT INFORMATION
  Report Type: 
  Country: None (occurrence: None)
  Receive Date: 20090512
  Receipt Date: 20090504
  Transmission Date: 20091009
  Serious: Yes (Death, Hospitalization)
  Sender: FDA-Public Use
  Company Number: FABR-1000426

PATIENT
  Age: 38 Year
  Sex: Male
  Weight: 181.4 kg

DRUGS (7)
  1. FABRAZYME [Suspect]
     Indication: FABRY'S DISEASE
     Dosage: 1 MG/KG, Q2W, INTRAVENOUS
     Route: 042
     Dates: start: 20060101, end: 20080914
  2. ACETAMINOPHEN [Concomitant]
  3. CLARITIN [Concomitant]
  4. LISINOPRIL [Concomitant]
  5. AMITRIPTYLINE HYDROCHLORIDE [Concomitant]
  6. SIMVASTATIN [Concomitant]
  7. ASPIRIN [Concomitant]

REACTIONS (2)
  - RENAL FAILURE ACUTE [None]
  - SEPTIC SHOCK [None]
